FAERS Safety Report 14543469 (Version 1)
Quarter: 2018Q1

REPORT INFORMATION
  Report Type: Spontaneous
  Country: CA (occurrence: CA)
  Receive Date: 20180216
  Receipt Date: 20180216
  Transmission Date: 20180509
  Serious: Yes (Hospitalization)
  Sender: FDA-Public Use
  Company Number: CA-TEVA-2018-CA-857481

PATIENT
  Age: 73 Year
  Sex: Female

DRUGS (5)
  1. PAROXETINE. [Concomitant]
     Active Substance: PAROXETINE
  2. PANTOLOC [Concomitant]
     Active Substance: PANTOPRAZOLE SODIUM
  3. AMLODIPINE [Suspect]
     Active Substance: AMLODIPINE BESYLATE
     Indication: ESSENTIAL HYPERTENSION
     Dosage: 2.5 MILLIGRAM DAILY;
     Route: 048
  4. OXAZEPAM. [Concomitant]
     Active Substance: OXAZEPAM
  5. SYNTHROID [Concomitant]
     Active Substance: LEVOTHYROXINE SODIUM

REACTIONS (4)
  - Blood immunoglobulin G increased [Recovering/Resolving]
  - Pain [Recovering/Resolving]
  - Skin lesion [Recovering/Resolving]
  - Subacute cutaneous lupus erythematosus [Recovering/Resolving]
